FAERS Safety Report 11690676 (Version 1)
Quarter: 2015Q4

REPORT INFORMATION
  Report Type: Spontaneous
  Country: US (occurrence: US)
  Receive Date: 20151102
  Receipt Date: 20151102
  Transmission Date: 20160304
  Serious: Yes (Hospitalization)
  Sender: FDA-Public Use
  Company Number: US-HORIZON-PEN-0193-2015

PATIENT
  Sex: Male

DRUGS (1)
  1. PENNSAID [Suspect]
     Active Substance: DICLOFENAC SODIUM
     Indication: ARTHRITIS
     Route: 061

REACTIONS (3)
  - Hospitalisation [Recovered/Resolved]
  - Arthralgia [Not Recovered/Not Resolved]
  - Drug dose omission [Not Recovered/Not Resolved]
